FAERS Safety Report 14472035 (Version 4)
Quarter: 2018Q1

REPORT INFORMATION
  Report Type: Report from Study
  Country: None (occurrence: GB)
  Receive Date: 20180131
  Receipt Date: 20180306
  Transmission Date: 20180509
  Serious: Yes (Hospitalization)
  Sender: FDA-Public Use
  Company Number: GB-ABBVIE-18P-167-2241044-00

PATIENT
  Age: 15 Year
  Sex: Male
  Weight: 33.9 kg

DRUGS (11)
  1. PREDNISOLONE. [Concomitant]
     Active Substance: PREDNISOLONE
     Dosage: DAILY WITH WEEKLY WEANING PLAN IN PLACE.
     Route: 048
     Dates: start: 20170223, end: 20170420
  2. MODULON [Concomitant]
     Indication: CROHN^S DISEASE
     Dosage: 6 CARTONS PER DAY
     Route: 048
     Dates: start: 20170515
  3. HUMIRA [Suspect]
     Active Substance: ADALIMUMAB
     Indication: CROHN^S DISEASE
     Route: 058
     Dates: start: 20170201
  4. HUMIRA [Suspect]
     Active Substance: ADALIMUMAB
     Route: 058
     Dates: start: 20170327, end: 20171207
  5. AZATHIOPRINE. [Suspect]
     Active Substance: AZATHIOPRINE
     Route: 048
     Dates: start: 20170327, end: 20171211
  6. AZATHIOPRINE. [Suspect]
     Active Substance: AZATHIOPRINE
     Indication: CROHN^S DISEASE
     Route: 048
     Dates: start: 20170109
  7. AZATHIOPRINE. [Suspect]
     Active Substance: AZATHIOPRINE
     Route: 048
     Dates: start: 20180122
  8. PREDNISOLONE. [Concomitant]
     Active Substance: PREDNISOLONE
     Dosage: DAILY WITH WEEKLY WEANING PLAN IN PLACE
     Route: 048
     Dates: start: 20170714
  9. HUMIRA [Suspect]
     Active Substance: ADALIMUMAB
     Route: 058
     Dates: start: 20171221
  10. PREDNISOLONE. [Concomitant]
     Active Substance: PREDNISOLONE
     Indication: CROHN^S DISEASE
     Route: 048
     Dates: start: 20161219, end: 20170111
  11. BUDENOFALK [Concomitant]
     Active Substance: BUDESONIDE
     Indication: CROHN^S DISEASE
     Route: 048
     Dates: start: 20170910, end: 20171204

REACTIONS (1)
  - Ileal stenosis [Recovered/Resolved]

NARRATIVE: CASE EVENT DATE: 20170706
